FAERS Safety Report 6685352-4 (Version None)
Quarter: 2010Q2

REPORT INFORMATION
  Report Type: 
  Country: None (occurrence: None)
  Receive Date: 20100416
  Receipt Date: 20100408
  Transmission Date: 20101027
  Serious: Yes (Hospitalization, Other)
  Sender: FDA-Public Use
  Company Number: US-AMGEN-QUU404435

PATIENT
  Sex: Female

DRUGS (7)
  1. SENSIPAR [Suspect]
     Indication: DRUG USE FOR UNKNOWN INDICATION
  2. LABETALOL HCL [Concomitant]
  3. AMLODIPINE [Concomitant]
  4. MORPHINE [Concomitant]
  5. PROTONIX [Concomitant]
  6. INSULIN [Concomitant]
  7. ZOCOR [Concomitant]

REACTIONS (6)
  - CEREBROVASCULAR ACCIDENT [None]
  - DEHYDRATION [None]
  - DYSPHAGIA [None]
  - NAUSEA [None]
  - RENAL FAILURE ACUTE [None]
  - VOMITING [None]
